FAERS Safety Report 4612788-5 (Version None)
Quarter: 2005Q1

REPORT INFORMATION
  Report Type: 
  Country: None (occurrence: None)
  Receive Date: 20050318
  Receipt Date: 19990602
  Transmission Date: 20050727
  Serious: Yes (Other)
  Sender: FDA-Public Use
  Company Number: PHBS1999BR11502

PATIENT
  Age: 65 Year
  Sex: Male

DRUGS (1)
  1. LEPONEX [Suspect]
     Dates: start: 19970729

REACTIONS (5)
  - BASOPHIL COUNT INCREASED [None]
  - EOSINOPHILIA [None]
  - LYMPHOCYTE COUNT INCREASED [None]
  - MONOCYTE COUNT INCREASED [None]
  - NEUTROPHIL COUNT INCREASED [None]
